FAERS Safety Report 15432496 (Version 1)
Quarter: 2018Q3

REPORT INFORMATION
  Report Type: Spontaneous
  Country: US (occurrence: US)
  Receive Date: 20180927
  Receipt Date: 20180927
  Transmission Date: 20181010
  Serious: Yes (Other)
  Sender: FDA-Public Use
  Company Number: US-ROCHE-2185859

PATIENT
  Sex: Female
  Weight: 83.99 kg

DRUGS (1)
  1. PERJETA [Suspect]
     Active Substance: PERTUZUMAB
     Indication: BREAST CANCER METASTATIC
     Route: 065
     Dates: start: 201408

REACTIONS (3)
  - Dysphemia [Unknown]
  - Tremor [Not Recovered/Not Resolved]
  - Cerebral atrophy [Unknown]
